FAERS Safety Report 6923997-4 (Version None)
Quarter: 2010Q3

REPORT INFORMATION
  Report Type: 
  Country: None (occurrence: None)
  Receive Date: 20100813
  Receipt Date: 20100804
  Transmission Date: 20110219
  Serious: Yes (Other)
  Sender: FDA-Public Use
  Company Number: US-PFIZER INC-2005082046

PATIENT
  Sex: Male
  Weight: 102.4 kg

DRUGS (6)
  1. ZOLOFT [Suspect]
     Indication: ANXIETY
     Dosage: 200 MG DAILY
     Dates: start: 20030101
  2. ZOLOFT [Suspect]
     Indication: POST-TRAUMATIC STRESS DISORDER
     Dosage: 150 MG DAILY
     Route: 048
     Dates: start: 20100701
  3. ZOLOFT [Suspect]
     Indication: DEPRESSION
  4. ZOLOFT [Suspect]
     Indication: STRESS
  5. GEODON [Suspect]
     Indication: SCHIZOPHRENIA
     Dosage: 80 MG DAILY
     Route: 048
     Dates: start: 20100501
  6. GEODON [Suspect]
     Dosage: 160 MG DAILY
     Route: 048
     Dates: start: 20100501

REACTIONS (9)
  - ANGER [None]
  - ANXIETY [None]
  - DIARRHOEA [None]
  - DYSPNOEA [None]
  - FLATULENCE [None]
  - INSOMNIA [None]
  - IRRITABILITY [None]
  - PANIC ATTACK [None]
  - SCHIZOPHRENIA [None]
